FAERS Safety Report 12544980 (Version 1)
Quarter: 2016Q3

REPORT INFORMATION
  Report Type: Spontaneous
  Country: NZ (occurrence: NZ)
  Receive Date: 20160711
  Receipt Date: 20160711
  Transmission Date: 20161109
  Serious: Yes (Other)
  Sender: FDA-Public Use
  Company Number: NZ-JNJFOC-20160704273

PATIENT
  Age: 36 Year
  Sex: Female

DRUGS (3)
  1. VINCRISTINE [Suspect]
     Active Substance: VINCRISTINE
     Indication: EMBRYONAL RHABDOMYOSARCOMA
     Dosage: ANTENATAL
     Route: 065
  2. DOXORUBICIN HYDROCHLORIDE. [Suspect]
     Active Substance: DOXORUBICIN HYDROCHLORIDE
     Indication: EMBRYONAL RHABDOMYOSARCOMA
     Dosage: ANTENATAL
     Route: 042
  3. CYCLOPHOSPHAMIDE. [Suspect]
     Active Substance: CYCLOPHOSPHAMIDE
     Indication: EMBRYONAL RHABDOMYOSARCOMA
     Dosage: ANTENATAL
     Route: 065

REACTIONS (6)
  - Neutropenia [Recovered/Resolved]
  - Product use issue [Unknown]
  - Off label use [Unknown]
  - Exposure during pregnancy [Recovered/Resolved]
  - Memory impairment [Recovered/Resolved]
  - Premature labour [Recovered/Resolved]
